FAERS Safety Report 7095906-1 (Version None)
Quarter: 2010Q4

REPORT INFORMATION
  Report Type: 
  Country: None (occurrence: None)
  Receive Date: 20101109
  Receipt Date: 20101109
  Transmission Date: 20110411
  Serious: Yes (Hospitalization)
  Sender: FDA-Public Use
  Company Number: None

PATIENT
  Sex: Female
  Weight: 77.5651 kg

DRUGS (1)
  1. CIPRO [Suspect]
     Dosage: 400MG IV
     Route: 042
     Dates: start: 20101101, end: 20101102

REACTIONS (2)
  - HYPERSENSITIVITY [None]
  - RENAL FAILURE ACUTE [None]
